FAERS Safety Report 7629499-4 (Version None)
Quarter: 2011Q3

REPORT INFORMATION
  Report Type: 
  Country: None (occurrence: None)
  Receive Date: 20110722
  Receipt Date: 20110714
  Transmission Date: 20111222
  Serious: Yes (Hospitalization)
  Sender: FDA-Public Use
  Company Number: DE-ACTELION-A-CH2011-50595

PATIENT
  Sex: Female

DRUGS (4)
  1. TRACLEER [Suspect]
     Dosage: 62.5 MG, BID
     Route: 048
     Dates: start: 20090501, end: 20090601
  2. AMLODIPINE [Suspect]
  3. TRACLEER [Suspect]
     Dosage: 125 MG, BID
     Route: 048
     Dates: start: 20090601, end: 20090630
  4. TRACLEER [Suspect]
     Indication: PULMONARY ARTERIAL HYPERTENSION
     Dosage: 62.5 MG, BID
     Route: 048
     Dates: start: 20090717

REACTIONS (7)
  - DIZZINESS [None]
  - DYSPNOEA [None]
  - CONCOMITANT DISEASE AGGRAVATED [None]
  - OEDEMA PERIPHERAL [None]
  - ARRHYTHMIA [None]
  - RESPIRATORY DISORDER [None]
  - PLEURAL EFFUSION [None]
